FAERS Safety Report 4661312-X (Version None)
Quarter: 2005Q2

REPORT INFORMATION
  Report Type: 
  Country: None (occurrence: None)
  Receive Date: 20050513
  Receipt Date: 20050502
  Transmission Date: 20051028
  Serious: Yes (Other)
  Sender: FDA-Public Use
  Company Number: NL-JNJFOC-20050500998

PATIENT
  Age: 45 Year
  Sex: Female

DRUGS (1)
  1. NIZORAL [Suspect]
     Indication: ADRENAL SUPPRESSION
     Route: 065

REACTIONS (4)
  - BLADDER DISORDER [None]
  - INCONTINENCE [None]
  - VAGINAL DISORDER [None]
  - VITAMIN B12 DEFICIENCY [None]
